FAERS Safety Report 7409575-1 (Version None)
Quarter: 2011Q2

REPORT INFORMATION
  Report Type: 
  Country: None (occurrence: None)
  Receive Date: 20110412
  Receipt Date: 20110329
  Transmission Date: 20111010
  Serious: Yes (Hospitalization)
  Sender: FDA-Public Use
  Company Number: CA-JNJFOC-20110312750

PATIENT
  Sex: Female
  Weight: 60 kg

DRUGS (6)
  1. NAPROSYN [Concomitant]
     Route: 065
  2. REMICADE [Suspect]
     Route: 042
  3. METHOTREXATE [Concomitant]
     Route: 065
  4. ENTROPHEN [Concomitant]
  5. REMICADE [Suspect]
     Indication: RHEUMATOID ARTHRITIS
     Route: 042
  6. NEXIUM [Concomitant]

REACTIONS (3)
  - HAEMOGLOBIN DECREASED [None]
  - FEMUR FRACTURE [None]
  - KNEE ARTHROPLASTY [None]
